FAERS Safety Report 8618502-0 (Version None)
Quarter: 2012Q3

REPORT INFORMATION
  Report Type: 
  Country: None (occurrence: None)
  Receive Date: 20120810
  Receipt Date: 20120801
  Transmission Date: 20120928
  Serious: Yes (Hospitalization)
  Sender: FDA-Public Use
  Company Number: UTC-020941

PATIENT
  Age: 35 Year
  Sex: Female
  Weight: 84.8 kg

DRUGS (7)
  1. REMODULIN [Suspect]
     Indication: PULMONARY ARTERIAL HYPERTENSION
     Dosage: 182.88 UG/KG (0.127 UG/KG,1 IN 1 MIN),SUBCUTANEOUS
     Route: 058
     Dates: start: 20120306
  2. REVATIO [Concomitant]
  3. COUMADIN [Concomitant]
  4. DIGOXIN [Concomitant]
  5. TRACLEER [Concomitant]
  6. BENADRYL [Concomitant]
  7. HYDROXYZINE [Concomitant]

REACTIONS (8)
  - CONDITION AGGRAVATED [None]
  - SEPSIS [None]
  - INFUSION SITE RASH [None]
  - PULMONARY HYPERTENSION [None]
  - INFUSION SITE INDURATION [None]
  - DYSPNOEA [None]
  - VOMITING [None]
  - INFUSION SITE CELLULITIS [None]
